FAERS Safety Report 5264893-0 (Version None)
Quarter: 2007Q1

REPORT INFORMATION
  Report Type: 
  Country: None (occurrence: None)
  Receive Date: 20070314
  Receipt Date: 20070302
  Transmission Date: 20070707
  Serious: Yes (Death, Other)
  Sender: FDA-Public Use
  Company Number: HQWYE650125JAN07

PATIENT
  Sex: Female

DRUGS (5)
  1. ZOSYN [Suspect]
     Indication: ABDOMINAL INFECTION
     Route: 042
     Dates: start: 20061120, end: 20061122
  2. PEPCID [Concomitant]
     Indication: GASTROOESOPHAGEAL REFLUX DISEASE
     Dosage: 20 EVERY 12 HOURS
     Route: 042
  3. LORTAB [Concomitant]
     Indication: PAIN
     Dosage: 5 MG EVERY 4 HOURS
     Route: 048
  4. PHENERGAN ^RHONE-POULENC^ [Concomitant]
     Indication: NAUSEA
     Dosage: 12.5 EVERY 6 HOURS
     Route: 042
  5. MORPHINE [Concomitant]
     Indication: PAIN
     Dosage: 2-5 MG EVERY 2 HOURS
     Route: 042

REACTIONS (5)
  - CARDIOGENIC SHOCK [None]
  - DEATH [None]
  - DYSPNOEA [None]
  - HYPOTENSION [None]
  - THROMBOTIC THROMBOCYTOPENIC PURPURA [None]
